FAERS Safety Report 10611965 (Version 2)
Quarter: 2015Q1

REPORT INFORMATION
  Report Type: Spontaneous
  Country: US (occurrence: US)
  Receive Date: 20141126
  Receipt Date: 20150123
  Transmission Date: 20150720
  Serious: Yes (Death, Life-Threatening, Hospitalization, Other)
  Sender: FDA-Public Use
  Company Number: US-MERCK-1411USA012620

PATIENT
  Sex: Male
  Weight: 74.83 kg

DRUGS (3)
  1. PLAVIX [Concomitant]
     Active Substance: CLOPIDOGREL BISULFATE
     Indication: CORONARY ARTERIAL STENT INSERTION
     Dosage: 75 MG, DAILY
     Dates: start: 200812, end: 201301
  2. JANUVIA [Suspect]
     Active Substance: SITAGLIPTIN PHOSPHATE
     Indication: TYPE 2 DIABETES MELLITUS
     Dosage: 100 MG, QD
     Route: 048
     Dates: start: 20090706, end: 20120626
  3. JANUMET [Suspect]
     Active Substance: METFORMIN HYDROCHLORIDE\SITAGLIPTIN PHOSPHATE
     Indication: TYPE 2 DIABETES MELLITUS
     Dosage: 50 MG/1000 MG, BID
     Route: 048
     Dates: start: 20091116, end: 20091216

REACTIONS (17)
  - Pericardial effusion [Unknown]
  - Renal cyst [Unknown]
  - Prostatic calcification [Unknown]
  - Pancreatic duct obstruction [Unknown]
  - Adenocarcinoma pancreas [Unknown]
  - Pleural fibrosis [Unknown]
  - Pulmonary calcification [Unknown]
  - Helicobacter infection [Unknown]
  - Pancreatic stent placement [Unknown]
  - Acute coronary syndrome [Unknown]
  - Hypertension [Unknown]
  - Bile duct stent insertion [Unknown]
  - Lymphadenopathy [Unknown]
  - Death [Fatal]
  - Bile duct obstruction [Unknown]
  - Large intestine polyp [Unknown]
  - Prostatomegaly [Unknown]

NARRATIVE: CASE EVENT DATE: 201205
